FAERS Safety Report 5700837-2 (Version None)
Quarter: 2008Q2

REPORT INFORMATION
  Report Type: 
  Country: None (occurrence: None)
  Receive Date: 20080407
  Receipt Date: 20080326
  Transmission Date: 20081010
  Serious: Yes (Death)
  Sender: FDA-Public Use
  Company Number: 230095J08BRA

PATIENT
  Age: 57 Year
  Sex: Male

DRUGS (3)
  1. REBIF [Suspect]
     Dosage: 44 MCG, 3 IN 1 WEEKS
     Dates: start: 20020325, end: 20080215
  2. MULTI-VITAMINS [Concomitant]
  3. I.V. SOLUTIONS [Concomitant]

REACTIONS (6)
  - APHASIA [None]
  - DYSPHAGIA [None]
  - HYPOKINESIA [None]
  - MULTI-ORGAN FAILURE [None]
  - URINARY TRACT INFECTION [None]
  - WEIGHT DECREASED [None]
